FAERS Safety Report 5698879-9 (Version None)
Quarter: 2008Q2

REPORT INFORMATION
  Report Type: 
  Country: None (occurrence: None)
  Receive Date: 20080408
  Receipt Date: 20060724
  Transmission Date: 20081010
  Serious: No
  Sender: FDA-Public Use
  Company Number: US-BAYER-US-2006-020475

PATIENT
  Age: 30 Year
  Sex: Female

DRUGS (5)
  1. ULTRAVIST 300 [Suspect]
     Indication: COMPUTERISED TOMOGRAM ABDOMEN
     Dosage: UNIT DOSE: 100 ML
     Route: 042
     Dates: start: 20060724, end: 20060724
  2. PREDNISONE [Concomitant]
     Dosage: UNIT DOSE: 10 MG
  3. ACTONEL [Concomitant]
  4. VITAMIN CAP [Concomitant]
  5. SINGULAIR [Concomitant]

REACTIONS (3)
  - EYE PRURITUS [None]
  - LACRIMATION INCREASED [None]
  - URTICARIA [None]
